FAERS Safety Report 7800075-3 (Version None)
Quarter: 2011Q4

REPORT INFORMATION
  Report Type: 
  Country: None (occurrence: None)
  Receive Date: 20111006
  Receipt Date: 20110927
  Transmission Date: 20120403
  Serious: Yes (Hospitalization)
  Sender: FDA-Public Use
  Company Number: BE-ROCHE-802197

PATIENT
  Age: 43 Year
  Sex: Female

DRUGS (5)
  1. VEMURAFENIB [Suspect]
     Route: 048
     Dates: start: 20110624, end: 20110701
  2. VEMURAFENIB [Suspect]
     Route: 048
     Dates: start: 20110707, end: 20110713
  3. VEMURAFENIB [Suspect]
     Dosage: REDUSED DOSE
     Route: 048
  4. VEMURAFENIB [Suspect]
     Route: 048
     Dates: start: 20110909, end: 20110910
  5. VEMURAFENIB [Suspect]
     Indication: METASTATIC MALIGNANT MELANOMA
     Route: 048

REACTIONS (1)
  - CONVULSION [None]
